FAERS Safety Report 8920124 (Version 2)
Quarter: 2013Q2

REPORT INFORMATION
  Report Type: Spontaneous
  Country: US (occurrence: US)
  Receive Date: 20121121
  Receipt Date: 20130411
  Transmission Date: 20140414
  Serious: Yes (Death, Other)
  Sender: FDA-Public Use
  Company Number: US-PFIZER INC-2012288291

PATIENT
  Age: 70 Year
  Sex: Male
  Weight: 49.89 kg

DRUGS (1)
  1. REVATIO [Suspect]
     Indication: CARDIOVASCULAR DISORDER
     Dosage: UNK, 3X/DAY
     Route: 048
     Dates: start: 2010

REACTIONS (6)
  - Neoplasm malignant [Fatal]
  - Hepatic cancer [Fatal]
  - Lung neoplasm malignant [Fatal]
  - Pancreatic carcinoma [Fatal]
  - Scleroderma [Fatal]
  - Off label use [Unknown]
